FAERS Safety Report 7357875-6 (Version None)
Quarter: 2011Q1

REPORT INFORMATION
  Report Type: 
  Country: None (occurrence: None)
  Receive Date: 20110317
  Receipt Date: 20110315
  Transmission Date: 20110831
  Serious: Yes (Other)
  Sender: FDA-Public Use
  Company Number: US-PFIZER INC-2011057349

PATIENT
  Sex: Female
  Weight: 57.143 kg

DRUGS (3)
  1. TRAZODONE [Concomitant]
     Dosage: 100 MG, UNK
  2. GEODON [Suspect]
     Indication: POST-TRAUMATIC STRESS DISORDER
     Dosage: 80 MG, 1X/DAY
     Route: 048
     Dates: start: 20091001, end: 20110124
  3. KLONOPIN [Concomitant]
     Dosage: 1 MG, 1X/DAY

REACTIONS (2)
  - MENTAL DISORDER [None]
  - PSORIASIS [None]
